FAERS Safety Report 15848643 (Version 1)
Quarter: 2019Q1

REPORT INFORMATION
  Report Type: Spontaneous
  Country: US (occurrence: US)
  Receive Date: 20190121
  Receipt Date: 20190121
  Transmission Date: 20190417
  Serious: Yes (Hospitalization)
  Sender: FDA-Public Use
  Company Number: US-NOVAST LABORATORIES, LTD-US-2019NOV000009

PATIENT
  Age: 90 Year
  Sex: Female

DRUGS (1)
  1. METOPROLOL SUCCINATE. [Suspect]
     Active Substance: METOPROLOL SUCCINATE
     Indication: PRODUCT USED FOR UNKNOWN INDICATION
     Dosage: 150 MG, UNK
     Route: 065

REACTIONS (5)
  - Overdose [Unknown]
  - Bradycardia [Unknown]
  - Hypotension [Unknown]
  - Cardiac failure acute [Unknown]
  - Toxicity to various agents [Unknown]
